FAERS Safety Report 24202476 (Version 3)
Quarter: 2025Q2

REPORT INFORMATION
  Report Type: Report from Study
  Country: CA (occurrence: CA)
  Receive Date: 20240813
  Receipt Date: 20250623
  Transmission Date: 20250717
  Serious: Yes (Other)
  Sender: SANDOZ
  Company Number: CA-SANDOZ-SDZ2024CA071860

PATIENT
  Sex: Male

DRUGS (1)
  1. HYRIMOZ [Suspect]
     Active Substance: ADALIMUMAB-ADAZ
     Indication: Colitis ulcerative
     Dosage: 40MG;EVERY TWO WEEKS (PRE-FILLED PEN STRENGTH:48/0.8MG/ML)
     Route: 058
     Dates: start: 20220601

REACTIONS (2)
  - Colitis ulcerative [Unknown]
  - General physical health deterioration [Unknown]
